FAERS Safety Report 25995302 (Version 1)
Quarter: 2025Q4

REPORT INFORMATION
  Report Type: Spontaneous
  Country: GB (occurrence: GB)
  Receive Date: 20251104
  Receipt Date: 20251104
  Transmission Date: 20260118
  Serious: Yes (Other)
  Sender: RANBAXY
  Company Number: GB-MHRA-TPP29269086C31739364YC1760699659892

PATIENT
  Age: 29 Year
  Sex: Female
  Weight: 140 kg

DRUGS (11)
  1. CODEINE [Suspect]
     Active Substance: CODEINE
     Indication: Ill-defined disorder
     Dosage: 15 MILLIGRAM, UNK
     Route: 065
     Dates: start: 20251016
  2. FUCIDIN [Concomitant]
     Active Substance: FUSIDATE SODIUM
     Indication: Ill-defined disorder
     Dosage: TO BE APPLIED TO THE AFFECTED AREA(S) TWICE  A ...
     Route: 065
     Dates: start: 20250801, end: 20250808
  3. LEUPROLIDE ACETATE [Concomitant]
     Active Substance: LEUPROLIDE ACETATE
     Indication: Ill-defined disorder
     Dosage: ONE DOSE (3.75MG) TO BE ADMINISTERED BY SC/ IM ...
     Route: 065
     Dates: start: 20250813, end: 20250910
  4. NITROFURANTOIN [Concomitant]
     Active Substance: NITROFURANTOIN
     Indication: Ill-defined disorder
     Dosage: TAKE ONE CAPSULE TWICE DAILY FOR 3 DAYS
     Route: 065
     Dates: start: 20250917, end: 20250920
  5. FUSIDIC ACID [Concomitant]
     Active Substance: FUSIDIC ACID
     Indication: Ill-defined disorder
     Dosage: TO BE APPLIED GENTLY  TO THE AFFECTED AREA(S) T...
     Route: 065
     Dates: start: 20251016
  6. PENICILLIN V [Concomitant]
     Active Substance: PENICILLIN V
     Indication: Ill-defined disorder
     Dosage: ONE TWICE A DAY
     Route: 065
     Dates: start: 20230622
  7. CALCIUM CARBONATE\CHOLECALCIFEROL [Concomitant]
     Active Substance: CALCIUM CARBONATE\CHOLECALCIFEROL
     Indication: Ill-defined disorder
     Dosage: ONE TABLET TO BE CHEWED ONCE DAILY TO HELP PROT...
     Route: 065
     Dates: start: 20230622
  8. VENLAFAXINE HYDROCHLORIDE [Concomitant]
     Active Substance: VENLAFAXINE HYDROCHLORIDE
     Indication: Ill-defined disorder
     Dosage: ONE CAPSULE TO BE TAKEN TWICE A DAY
     Route: 065
     Dates: start: 20230622
  9. ESTRADIOL [Concomitant]
     Active Substance: ESTRADIOL
     Indication: Ill-defined disorder
     Dosage: ONE PATCH TO BE APPLIED TWICE A WEEK  TO CLEAN ...
     Route: 065
     Dates: start: 20250617
  10. LUPRON DEPOT [Concomitant]
     Active Substance: LEUPROLIDE ACETATE
     Indication: Ill-defined disorder
     Dosage: ONE DOSE OF 3.75 MG  TO BE ADMINISTERED BY S/C ...
     Route: 065
     Dates: start: 20250624
  11. TIBOLONE [Concomitant]
     Active Substance: TIBOLONE
     Indication: Ill-defined disorder
     Dosage: TAKE ONE DAILY
     Route: 065
     Dates: start: 20250624

REACTIONS (1)
  - Swollen tongue [Recovered/Resolved]

NARRATIVE: CASE EVENT DATE: 20251017
